FAERS Safety Report 17767051 (Version 2)
Quarter: 2020Q2

REPORT INFORMATION
  Report Type: Spontaneous
  Country: US (occurrence: US)
  Receive Date: 20200511
  Receipt Date: 20200518
  Transmission Date: 20200714
  Serious: No
  Sender: FDA-Public Use
  Company Number: US-AMGEN-USASP2020073460

PATIENT
  Age: 86 Year
  Sex: Female

DRUGS (10)
  1. AZASITE [Concomitant]
     Active Substance: AZITHROMYCIN MONOHYDRATE
     Dosage: UNK
  2. RESTASIS [Concomitant]
     Active Substance: CYCLOSPORINE
     Dosage: UNK
  3. SYNTHROID [Concomitant]
     Active Substance: LEVOTHYROXINE SODIUM
     Dosage: UNK
  4. AZITHROMYCIN ANHYDROUS. [Concomitant]
     Active Substance: AZITHROMYCIN ANHYDROUS
     Dosage: UNK
  5. LEVOFLOXACIN. [Concomitant]
     Active Substance: LEVOFLOXACIN
     Dosage: UNK
  6. DEXAME [Concomitant]
     Dosage: UNK
  7. ENBREL [Suspect]
     Active Substance: ETANERCEPT
     Indication: RHEUMATOID ARTHRITIS
     Dosage: 25 MILLIGRAM, 2 TIMES/WK
     Route: 058
  8. SUMATRIPTAN SUCCINATE. [Concomitant]
     Active Substance: SUMATRIPTAN SUCCINATE
     Dosage: UNK
  9. NEOMYCIN;POLYMYXIN [Concomitant]
     Dosage: UNK
  10. AMOXICILLIN. [Concomitant]
     Active Substance: AMOXICILLIN
     Dosage: UNK

REACTIONS (2)
  - Device use error [Unknown]
  - Product dose omission [Unknown]

NARRATIVE: CASE EVENT DATE: 20200430
